FAERS Safety Report 20164822 (Version 1)
Quarter: 2021Q4

REPORT INFORMATION
  Report Type: Spontaneous
  Country: US (occurrence: None)
  Receive Date: 20211208
  Receipt Date: 20211208
  Transmission Date: 20220303
  Serious: Yes (Hospitalization)
  Sender: FDA-Public Use
  Company Number: None

PATIENT
  Age: 71 Year
  Sex: Male
  Weight: 69 kg

DRUGS (1)
  1. CHLORTHALIDONE [Suspect]
     Active Substance: CHLORTHALIDONE
     Indication: Hypertension

REACTIONS (4)
  - Hyponatraemia [None]
  - Hypokalaemia [None]
  - Inappropriate antidiuretic hormone secretion [None]
  - Pulmonary mass [None]

NARRATIVE: CASE EVENT DATE: 20210806
